FAERS Safety Report 19331611 (Version 2)
Quarter: 2021Q3

REPORT INFORMATION
  Report Type: Spontaneous
  Country: JP (occurrence: JP)
  Receive Date: 20210528
  Receipt Date: 20210712
  Transmission Date: 20211014
  Serious: Yes (Other)
  Sender: FDA-Public Use
  Company Number: NVSJ2021JP008173

PATIENT
  Age: 35 Year
  Sex: Female

DRUGS (4)
  1. TAFINLAR [Suspect]
     Active Substance: DABRAFENIB MESYLATE
     Dosage: UNK
     Route: 048
  2. MEKINIST [Suspect]
     Active Substance: TRAMETINIB DIMETHYL SULFOXIDE
     Indication: MALIGNANT MELANOMA
     Dosage: 2 MG
     Route: 048
  3. TAFINLAR [Suspect]
     Active Substance: DABRAFENIB MESYLATE
     Indication: MALIGNANT MELANOMA
     Dosage: 300 MG
     Route: 048
  4. MEKINIST [Suspect]
     Active Substance: TRAMETINIB DIMETHYL SULFOXIDE
     Dosage: UNK
     Route: 048

REACTIONS (10)
  - Anterior chamber cell [Recovering/Resolving]
  - Keratic precipitates [Recovering/Resolving]
  - Anterior chamber inflammation [Recovering/Resolving]
  - Serous retinal detachment [Recovering/Resolving]
  - Autoimmune uveitis [Recovering/Resolving]
  - Ocular hyperaemia [Recovering/Resolving]
  - Vogt-Koyanagi-Harada disease [Recovering/Resolving]
  - Visual acuity reduced [Recovered/Resolved]
  - Ophthalmia nodosa [Recovering/Resolving]
  - Chorioretinopathy [Recovering/Resolving]
